FAERS Safety Report 12947996 (Version 1)
Quarter: 2016Q4

REPORT INFORMATION
  Report Type: Report from Study
  Country: JP (occurrence: JP)
  Receive Date: 20161116
  Receipt Date: 20161116
  Transmission Date: 20170207
  Serious: Yes (Death, Hospitalization)
  Sender: FDA-Public Use
  Company Number: JP-DSJP-DSJ-2016-134358

PATIENT

DRUGS (15)
  1. BAKTAR [Concomitant]
     Active Substance: SULFAMETHOXAZOLE\TRIMETHOPRIM
     Dosage: 1 G/DAY
     Route: 048
     Dates: start: 20160325, end: 20160615
  2. CRAVIT INTRAVENOUS DRIP INFUSION [Concomitant]
     Dosage: 500 MG/DAY
     Route: 042
     Dates: start: 20160819, end: 20160823
  3. ZOVIRAX [Concomitant]
     Active Substance: ACYCLOVIR
     Dosage: 200 MG/DAY
     Route: 048
     Dates: start: 20160325, end: 20160615
  4. LANSOPRAZOLE. [Concomitant]
     Active Substance: LANSOPRAZOLE
     Dosage: 15 MG/DAY
     Route: 048
     Dates: start: 20160701, end: 20160818
  5. MORPHINE HYDROCHLORIDE INJECTION [Concomitant]
     Dosage: 20 MG/DAY
     Route: 042
     Dates: start: 20160822, end: 20160823
  6. WARFARIN [Concomitant]
     Active Substance: WARFARIN
     Dosage: 3.5 MG/DAY
     Route: 048
     Dates: start: 20160313, end: 20160801
  7. NEXIUM [Concomitant]
     Active Substance: ESOMEPRAZOLE MAGNESIUM
     Dosage: 20 MG/DAY
     Route: 048
     Dates: end: 20160630
  8. SPRYCEL [Concomitant]
     Active Substance: DASATINIB
     Dosage: 100 MG/DAY
     Route: 048
     Dates: end: 20160301
  9. IMATINIB [Concomitant]
     Active Substance: IMATINIB
     Dosage: 600 MG/DAY
     Route: 048
     Dates: start: 20160301, end: 20160513
  10. PREDONINE [Concomitant]
     Active Substance: PREDNISOLONE\PREDNISOLONE ACETATE\PREDNISOLONE SODIUM SUCCINATE
     Dosage: 15 MG/DAY
     Route: 048
     Dates: start: 20160325, end: 20160818
  11. ENDOXAN                            /00021101/ [Concomitant]
     Active Substance: CYCLOPHOSPHAMIDE
     Dosage: 50 MG/DAY
     Route: 048
     Dates: start: 20160805, end: 20160818
  12. IRSOGLADINE MALEATE [Concomitant]
     Active Substance: IRSOGLADINE MALEATE
     Dosage: 4 MG/DAY
     Route: 048
     Dates: end: 20160615
  13. SPRYCEL [Concomitant]
     Active Substance: DASATINIB
     Dosage: 140MG/DAY
     Route: 048
     Dates: start: 20160514, end: 20160615
  14. EDOXABAN [Suspect]
     Active Substance: EDOXABAN TOSYLATE
     Indication: DEEP VEIN THROMBOSIS
     Route: 048
     Dates: start: 20151008, end: 20160223
  15. MEROPENEM. [Concomitant]
     Active Substance: MEROPENEM
     Dosage: 3 G/DAY
     Route: 042
     Dates: start: 20160812, end: 20160818

REACTIONS (2)
  - Diverticulum intestinal haemorrhagic [Recovered/Resolved]
  - Acute lymphocytic leukaemia [Fatal]

NARRATIVE: CASE EVENT DATE: 20160223
